FAERS Safety Report 6005629-5 (Version None)
Quarter: 2008Q4

REPORT INFORMATION
  Report Type: 
  Country: None (occurrence: None)
  Receive Date: 20081217
  Receipt Date: 20081211
  Transmission Date: 20090506
  Serious: Yes (Other)
  Sender: FDA-Public Use
  Company Number: GB-ALLERGAN-0811932US

PATIENT
  Sex: Female

DRUGS (7)
  1. BOTOX [Suspect]
     Indication: MUSCLE SPASTICITY
     Dosage: 200 UNITS, SINGLE
     Route: 030
  2. BOTOX [Suspect]
     Dosage: 300 UNITS, SINGLE
     Route: 030
  3. BACLOFEN [Concomitant]
     Indication: MUSCLE SPASMS
     Dosage: 10 MG, Q3HR
     Route: 048
  4. BACLOFEN [Concomitant]
     Indication: MUSCLE SPASTICITY
  5. PREGABALIN [Concomitant]
     Indication: PAIN
     Dosage: 300 MG, BID
     Route: 048
  6. TIZANIDINE HCL [Concomitant]
     Indication: MUSCLE SPASMS
     Dosage: 4 MG, TID
     Route: 048
  7. TIZANIDINE HCL [Concomitant]
     Indication: MUSCLE SPASTICITY

REACTIONS (2)
  - MUSCLE ATROPHY [None]
  - THERAPEUTIC RESPONSE DECREASED [None]
